FAERS Safety Report 12522275 (Version 19)
Quarter: 2017Q3

REPORT INFORMATION
  Report Type: Report from Study
  Country: CO (occurrence: CO)
  Receive Date: 20160701
  Receipt Date: 20170920
  Transmission Date: 20171127
  Serious: Yes (Hospitalization, Other)
  Sender: FDA-Public Use
  Company Number: PHHY2016CO055860

PATIENT
  Age: 67 Year
  Sex: Female
  Weight: 46 kg

DRUGS (11)
  1. LOSARTAN. [Suspect]
     Active Substance: LOSARTAN
     Indication: HYPERTENSION
     Dosage: 50 MG, QD
     Route: 048
  2. AMLODIPINE [Concomitant]
     Active Substance: AMLODIPINE BESYLATE
     Indication: HYPERTENSION
     Dosage: 5 MG, QD
     Route: 048
  3. LEVODOPA [Concomitant]
     Active Substance: LEVODOPA
     Indication: PARKINSON^S DISEASE
     Dosage: 200 MG, QID
     Route: 048
  4. REVOLADE [Suspect]
     Active Substance: ELTROMBOPAG
     Indication: IMMUNE THROMBOCYTOPENIC PURPURA
     Dosage: 50 MG, QD
     Route: 048
     Dates: start: 20151008, end: 201610
  5. OMEPRAZOLE. [Concomitant]
     Active Substance: OMEPRAZOLE
     Indication: PRODUCT USED FOR UNKNOWN INDICATION
     Dosage: UNK
     Route: 065
     Dates: start: 20150909
  6. CARBIDOPA. [Concomitant]
     Active Substance: CARBIDOPA
     Indication: PARKINSON^S DISEASE
     Dosage: 50 MG, Q4H
     Route: 048
  7. MIRAPEX [Concomitant]
     Active Substance: PRAMIPEXOLE DIHYDROCHLORIDE
     Indication: PRODUCT USED FOR UNKNOWN INDICATION
     Dosage: 3 MG, QD (AFTER LUNCH)
     Route: 048
     Dates: start: 20160517
  8. ENTACAPONE. [Concomitant]
     Active Substance: ENTACAPONE
     Indication: PRODUCT USED FOR UNKNOWN INDICATION
     Dosage: 200 MG, QD
     Route: 048
  9. PREDNISOLON [Concomitant]
     Active Substance: PREDNISOLONE
     Indication: PRODUCT USED FOR UNKNOWN INDICATION
     Dosage: 5 MG, UNK
     Route: 065
  10. INSULIN [Concomitant]
     Active Substance: INSULIN NOS
     Indication: DIABETES MELLITUS
     Dosage: 8 MG, QHS (30 IU, UNK,20 UNITS IN MORNING AND 10 UNITS AT NIGHT.)
     Route: 065
  11. STALEVO [Suspect]
     Active Substance: CARBIDOPA\ENTACAPONE\LEVODOPA
     Indication: PARKINSON^S DISEASE
     Dosage: 200 MG, QOD
     Route: 048

REACTIONS (54)
  - Parkinson^s disease [Unknown]
  - Salivary hypersecretion [Unknown]
  - Yellow skin [Unknown]
  - Platelet count decreased [Unknown]
  - Drug intolerance [Unknown]
  - Mouth haemorrhage [Unknown]
  - Hypertension [Unknown]
  - Tachycardia [Unknown]
  - Inflammation [Unknown]
  - Neck pain [Unknown]
  - Anxiety [Unknown]
  - Agitation [Unknown]
  - Headache [Unknown]
  - Abdominal pain [Unknown]
  - Platelet count abnormal [Unknown]
  - Lacrimation increased [Unknown]
  - Nausea [Unknown]
  - Blood glucose decreased [Unknown]
  - Cardiac failure [Unknown]
  - Inflammatory bowel disease [Unknown]
  - Erythema [Unknown]
  - Hyperhidrosis [Recovered/Resolved]
  - Osteoporosis [Unknown]
  - Fatigue [Unknown]
  - Insomnia [Unknown]
  - Asthenia [Unknown]
  - Oral disorder [Unknown]
  - Gait disturbance [Unknown]
  - Aphonia [Unknown]
  - Contusion [Unknown]
  - Gastritis [Unknown]
  - Nasopharyngitis [Unknown]
  - Weight decreased [Unknown]
  - Sleep disorder [Unknown]
  - Balance disorder [Unknown]
  - Malaise [Unknown]
  - Abdominal pain upper [Not Recovered/Not Resolved]
  - Depression [Unknown]
  - Decreased appetite [Unknown]
  - Alopecia [Unknown]
  - Diabetes mellitus inadequate control [Unknown]
  - Gastric cancer [Unknown]
  - Rash papular [Unknown]
  - Hyperhidrosis [Unknown]
  - Vomiting [Unknown]
  - General physical health deterioration [Unknown]
  - Visual impairment [Unknown]
  - Coagulopathy [Unknown]
  - Tremor [Unknown]
  - Amnesia [Unknown]
  - Gait inability [Unknown]
  - Feeling abnormal [Unknown]
  - Bone pain [Unknown]
  - Dysstasia [Unknown]

NARRATIVE: CASE EVENT DATE: 20160623
